FAERS Safety Report 18025641 (Version 1)
Quarter: 2020Q3

REPORT INFORMATION
  Report Type: Other
  Country: US (occurrence: US)
  Receive Date: 20200715
  Receipt Date: 20200715
  Transmission Date: 20201103
  Serious: Yes (Death)
  Sender: FDA-Public Use
  Company Number: US-ROCHE-2641840

PATIENT
  Sex: Male
  Weight: 157 kg

DRUGS (3)
  1. OMALIZUMAB. [Suspect]
     Active Substance: OMALIZUMAB
     Indication: EMPHYSEMA
  2. OMALIZUMAB. [Suspect]
     Active Substance: OMALIZUMAB
     Indication: ASTHMA
     Dosage: INFUSE 300MG SUBCUTANEOUSLY EVERY 2 WEEK(S)
     Route: 058
  3. OMALIZUMAB. [Suspect]
     Active Substance: OMALIZUMAB
     Indication: CHRONIC OBSTRUCTIVE PULMONARY DISEASE

REACTIONS (1)
  - Death [Fatal]
